FAERS Safety Report 18683742 (Version 1)
Quarter: 2020Q4

REPORT INFORMATION
  Report Type: Spontaneous
  Country: US (occurrence: US)
  Receive Date: 20201230
  Receipt Date: 20201230
  Transmission Date: 20210114
  Serious: No
  Sender: FDA-Public Use
  Company Number: US-PFIZER INC-2020515863

PATIENT
  Age: 69 Year

DRUGS (1)
  1. XELJANZ [Suspect]
     Active Substance: TOFACITINIB CITRATE
     Dosage: 0.5 DF, 2X/DAY (HALF A PILL TWICE A DAY)
     Route: 048

REACTIONS (2)
  - Confusional state [Unknown]
  - Off label use [Unknown]
